FAERS Safety Report 6078365-7 (Version None)
Quarter: 2009Q1

REPORT INFORMATION
  Report Type: 
  Country: None (occurrence: None)
  Receive Date: 20090213
  Receipt Date: 20090211
  Transmission Date: 20090719
  Serious: Yes (Other)
  Sender: FDA-Public Use
  Company Number: US-JNJCH-2009002042

PATIENT
  Age: 11 Year
  Sex: Female
  Weight: 46.3 kg

DRUGS (2)
  1. BENGAY ULTRA STRENGTH [Suspect]
     Indication: DRUG USE FOR UNKNOWN INDICATION
     Dosage: TEXT:UNSPECIFIED
     Route: 055
     Dates: start: 20090120, end: 20090121
  2. PROAIR HFA [Concomitant]
     Indication: ASTHMA
     Dosage: TEXT:UNKNOWN AS NEEDED
     Route: 065

REACTIONS (2)
  - ASTHMA [None]
  - PRODUCT QUALITY ISSUE [None]
